FAERS Safety Report 22161216 (Version 1)
Quarter: 2023Q1

REPORT INFORMATION
  Report Type: Report from Study
  Country: GB (occurrence: GB)
  Receive Date: 20230331
  Receipt Date: 20230331
  Transmission Date: 20230418
  Serious: Yes (Death)
  Sender: FDA-Public Use
  Company Number: GB-TEVA-2023-GB-2871380

PATIENT
  Sex: Male

DRUGS (1)
  1. OCTREOTIDE [Suspect]
     Active Substance: OCTREOTIDE
     Indication: Product used for unknown indication
     Dosage: FORM STRENGTH: 30MILLIGRAM, DATE OF LAST ADMINISTRATION: 08-02-2023
     Route: 065

REACTIONS (1)
  - Death [Fatal]
